FAERS Safety Report 9798472 (Version 2)
Quarter: 2016Q3

REPORT INFORMATION
  Report Type: Spontaneous
  Country: US (occurrence: US)
  Receive Date: 20140106
  Receipt Date: 20160920
  Transmission Date: 20161109
  Serious: No
  Sender: FDA-Public Use
  Company Number: US-009507513-1401USA001141

PATIENT
  Age: 30 Year
  Sex: Female
  Weight: 81.63 kg

DRUGS (1)
  1. NEXPLANON [Suspect]
     Active Substance: ETONOGESTREL
     Indication: CONTRACEPTION
     Dosage: 3 YEAR IMPLANT
     Route: 059
     Dates: start: 20130813

REACTIONS (6)
  - Headache [Unknown]
  - Incorrect drug administration duration [Unknown]
  - Asthenia [Not Recovered/Not Resolved]
  - Feeling abnormal [Unknown]
  - Amenorrhoea [Recovered/Resolved]
  - Menorrhagia [Not Recovered/Not Resolved]

NARRATIVE: CASE EVENT DATE: 20130813
